FAERS Safety Report 7738439-9 (Version None)
Quarter: 2011Q3

REPORT INFORMATION
  Report Type: 
  Country: None (occurrence: None)
  Receive Date: 20110908
  Receipt Date: 20110831
  Transmission Date: 20111222
  Serious: No
  Sender: FDA-Public Use
  Company Number: JP-B.I. PHARMACEUTICALS,INC./RIDGEFIELD-2011-BP-16643NB

PATIENT
  Sex: Male

DRUGS (6)
  1. PRADAXA [Suspect]
     Dosage: 220 MG
     Route: 048
     Dates: start: 20110317, end: 20110728
  2. ARICEPT [Concomitant]
     Route: 065
  3. ZOLPIDEM [Concomitant]
     Dosage: 10 MG
     Route: 065
  4. ALLOPURINOL [Concomitant]
     Dosage: 100 MG
     Route: 065
  5. LASIX [Concomitant]
     Dosage: 10 MG
     Route: 065
  6. MAGMITT [Concomitant]
     Route: 065

REACTIONS (3)
  - ACTIVATED PARTIAL THROMBOPLASTIN TIME PROLONGED [None]
  - INTERNATIONAL NORMALISED RATIO INCREASED [None]
  - PROTHROMBIN TIME PROLONGED [None]
